FAERS Safety Report 8792525 (Version 2)
Quarter: 2015Q2

REPORT INFORMATION
  Report Type: Report from Study
  Country: US (occurrence: US)
  Receive Date: 20120918
  Receipt Date: 20150408
  Transmission Date: 20150821
  Serious: Yes (Death)
  Sender: FDA-Public Use
  Company Number: US-ROCHE-1127632

PATIENT
  Sex: Male

DRUGS (12)
  1. ZOFRAN [Concomitant]
     Active Substance: ONDANSETRON HYDROCHLORIDE
     Route: 065
  2. ALLOPURINOL. [Concomitant]
     Active Substance: ALLOPURINOL
     Route: 065
  3. LEXAPRO [Concomitant]
     Active Substance: ESCITALOPRAM OXALATE
     Route: 065
  4. LISINOPRIL. [Concomitant]
     Active Substance: LISINOPRIL
     Route: 065
  5. ZOCOR [Concomitant]
     Active Substance: SIMVASTATIN
     Route: 065
  6. ACARBOSE. [Concomitant]
     Active Substance: ACARBOSE
     Route: 065
  7. AVASTIN [Suspect]
     Active Substance: BEVACIZUMAB
     Indication: BRAIN NEOPLASM MALIGNANT
     Route: 042
     Dates: start: 20060810
  8. COLACE [Concomitant]
     Active Substance: DOCUSATE SODIUM
     Route: 065
  9. ZANTAC [Concomitant]
     Active Substance: RANITIDINE HYDROCHLORIDE
     Route: 065
  10. KEPPRA [Concomitant]
     Active Substance: LEVETIRACETAM
     Route: 065
  11. TEMODAR [Concomitant]
     Active Substance: TEMOZOLOMIDE
     Route: 065
  12. DECADRON [Concomitant]
     Active Substance: DEXAMETHASONE
     Dosage: AS EXPLAINED BY DOCTOR
     Route: 065

REACTIONS (7)
  - Death [Fatal]
  - Gait disturbance [Unknown]
  - Cyanosis [Unknown]
  - Coordination abnormal [Unknown]
  - Headache [Unknown]
  - Pollakiuria [Unknown]
  - Off label use [Unknown]
